FAERS Safety Report 5598339-X (Version None)
Quarter: 2008Q1

REPORT INFORMATION
  Report Type: 
  Country: None (occurrence: None)
  Receive Date: 20080122
  Receipt Date: 20080121
  Transmission Date: 20080703
  Serious: Yes (Other)
  Sender: FDA-Public Use
  Company Number: B0504157A

PATIENT
  Age: 4 Year
  Sex: Female
  Weight: 12.5 kg

DRUGS (2)
  1. VALTREX [Suspect]
     Indication: VARICELLA
     Dosage: .5G THREE TIMES PER DAY
     Route: 048
     Dates: start: 20080115, end: 20080116
  2. PERIACTIN [Concomitant]
     Route: 048

REACTIONS (1)
  - DELIRIUM [None]
